FAERS Safety Report 25662991 (Version 1)
Quarter: 2025Q3

REPORT INFORMATION
  Report Type: Spontaneous
  Country: EU (occurrence: EU)
  Receive Date: 20250811
  Receipt Date: 20250811
  Transmission Date: 20251021
  Serious: Yes (Other)
  Sender: CELLTRION
  Company Number: EU-ABBVIE-6308145

PATIENT

DRUGS (2)
  1. ADALIMUMAB [Suspect]
     Active Substance: ADALIMUMAB
     Indication: Hidradenitis
     Route: 058
     Dates: start: 201607
  2. ADALIMUMAB [Suspect]
     Active Substance: ADALIMUMAB

REACTIONS (7)
  - Colitis ulcerative [Unknown]
  - Inflammatory marker increased [Unknown]
  - Nodule [Unknown]
  - Skin disorder [Unknown]
  - Fistula discharge [Unknown]
  - Local reaction [Unknown]
  - Inflammation [Unknown]

NARRATIVE: CASE EVENT DATE: 20160701
